FAERS Safety Report 15709548 (Version 2)
Quarter: 2018Q4

REPORT INFORMATION
  Report Type: Spontaneous
  Country: US (occurrence: US)
  Receive Date: 20181211
  Receipt Date: 20181226
  Transmission Date: 20190205
  Serious: No
  Sender: FDA-Public Use
  Company Number: US-SUNOVION-2018SUN004665

PATIENT
  Age: 16 Year
  Sex: Female

DRUGS (1)
  1. APTIOM [Suspect]
     Active Substance: ESLICARBAZEPINE ACETATE
     Indication: EPILEPSY
     Dosage: 600 MG, TID
     Route: 048

REACTIONS (4)
  - Irritability [Unknown]
  - Psychomotor hyperactivity [Unknown]
  - Off label use [Unknown]
  - Nervousness [Unknown]
